FAERS Safety Report 23690888 (Version 2)
Quarter: 2024Q2

REPORT INFORMATION
  Report Type: Spontaneous
  Country: US (occurrence: US)
  Receive Date: 20240401
  Receipt Date: 20240531
  Transmission Date: 20240715
  Serious: Yes (Death, Other)
  Sender: FDA-Public Use
  Company Number: US-GSK-US2024039908

PATIENT

DRUGS (1)
  1. ANORO ELLIPTA [Suspect]
     Active Substance: UMECLIDINIUM BROMIDE\VILANTEROL TRIFENATATE
     Indication: Product used for unknown indication
     Dosage: UNK, 62.525MCG INH 60
     Dates: end: 20240309

REACTIONS (1)
  - Hip fracture [Fatal]
